FAERS Safety Report 23134821 (Version 1)
Quarter: 2023Q4

REPORT INFORMATION
  Report Type: Spontaneous
  Country: US (occurrence: None)
  Receive Date: 20231031
  Receipt Date: 20231031
  Transmission Date: 20240110
  Serious: Yes (unspecified)
  Sender: FDA-Public Use
  Company Number: None

PATIENT
  Age: 43 Year
  Sex: Female
  Weight: 63 kg

DRUGS (1)
  1. LUMIFY [Suspect]
     Active Substance: BRIMONIDINE TARTRATE
     Indication: Ocular hyperaemia
     Dosage: FREQUENCY : AS NEEDED;?
     Route: 047

REACTIONS (5)
  - Hordeolum [None]
  - Swelling of eyelid [None]
  - Vision blurred [None]
  - Foreign body in eye [None]
  - Ocular hyperaemia [None]

NARRATIVE: CASE EVENT DATE: 20230122
